FAERS Safety Report 9101856 (Version 1)
Quarter: 2013Q1

REPORT INFORMATION
  Report Type: Spontaneous
  Country: US (occurrence: None)
  Receive Date: 20130220
  Receipt Date: 20130220
  Transmission Date: 20140127
  Serious: Yes (Hospitalization)
  Sender: FDA-Public Use
  Company Number: None

PATIENT
  Age: 61 Year
  Sex: Female

DRUGS (1)
  1. XELODA [Suspect]
     Indication: COLON CANCER
     Dosage: 1500 MG   TWICE DAILY  14 DAY ON, 7    BY MOUTH?01/04/2013  TO  01/23/2013
     Route: 048
     Dates: start: 20130104, end: 20130123

REACTIONS (4)
  - Diarrhoea [None]
  - Dehydration [None]
  - Hypotension [None]
  - No therapeutic response [None]
